FAERS Safety Report 7229680-2 (Version None)
Quarter: 2011Q1

REPORT INFORMATION
  Report Type: 
  Country: None (occurrence: None)
  Receive Date: 20110117
  Receipt Date: 20110112
  Transmission Date: 20110831
  Serious: Yes (Death, Life-Threatening)
  Sender: FDA-Public Use
  Company Number: NL-JNJFOC-20110103297

PATIENT
  Sex: Female
  Weight: 45 kg

DRUGS (3)
  1. CAELYX [Suspect]
     Indication: OVARIAN CANCER
     Route: 042
  2. FLUIMUCIL [Concomitant]
  3. REMICADE [Concomitant]
     Indication: RHEUMATOID ARTHRITIS
     Route: 042

REACTIONS (2)
  - RESPIRATORY FAILURE [None]
  - PRURITUS [None]
